FAERS Safety Report 7915971-6 (Version None)
Quarter: 2011Q4

REPORT INFORMATION
  Report Type: 
  Country: None (occurrence: None)
  Receive Date: 20111115
  Receipt Date: 20111107
  Transmission Date: 20120403
  Serious: Yes (Other)
  Sender: FDA-Public Use
  Company Number: CA-ASTRAZENECA-2011SE67436

PATIENT
  Age: 63 Year
  Sex: Female
  Weight: 86.2 kg

DRUGS (6)
  1. COZAAR [Concomitant]
  2. CRESTOR [Suspect]
     Route: 048
  3. HYZAAR [Concomitant]
     Route: 048
  4. RIVA-ATENOLOL [Concomitant]
     Route: 048
  5. ASPIRIN [Concomitant]
     Route: 048
  6. OXAZEPAM [Concomitant]

REACTIONS (6)
  - RENAL PAIN [None]
  - BACTERIAL TEST POSITIVE [None]
  - COAGULOPATHY [None]
  - CHROMATURIA [None]
  - PALPITATIONS [None]
  - MUSCLE SPASMS [None]
